FAERS Safety Report 6423332-4 (Version None)
Quarter: 2009Q4

REPORT INFORMATION
  Report Type: 
  Country: None (occurrence: None)
  Receive Date: 20091102
  Receipt Date: 20091026
  Transmission Date: 20100525
  Serious: Yes (Other)
  Sender: FDA-Public Use
  Company Number: TR-ELI_LILLY_AND_COMPANY-TR200910006185

PATIENT
  Age: 33 Year
  Sex: Female

DRUGS (2)
  1. HUMULIN N [Suspect]
     Indication: GESTATIONAL DIABETES
     Dosage: 20 U, 3/D
     Route: 058
     Dates: start: 20090901, end: 20091024
  2. HUMULIN R [Suspect]
     Indication: GESTATIONAL DIABETES
     Dosage: 20 U, DAILY (1/D), AT NIGHT
     Route: 058
     Dates: start: 20090901, end: 20091024

REACTIONS (3)
  - ABORTION SPONTANEOUS [None]
  - BLOOD GLUCOSE INCREASED [None]
  - DRUG EXPOSURE DURING PREGNANCY [None]
